FAERS Safety Report 5429898-5 (Version None)
Quarter: 2007Q3

REPORT INFORMATION
  Report Type: 
  Country: None (occurrence: None)
  Receive Date: 20070829
  Receipt Date: 20070820
  Transmission Date: 20080115
  Serious: Yes (Death, Hospitalization, Other)
  Sender: FDA-Public Use
  Company Number: US-PFIZER INC-2006148858

PATIENT
  Sex: Male
  Weight: 61.2 kg

DRUGS (6)
  1. SUTENT [Suspect]
     Indication: RENAL CELL CARCINOMA STAGE UNSPECIFIED
     Dates: start: 20061103, end: 20061122
  2. DEMEROL [Suspect]
     Route: 030
  3. TOPROL-XL [Concomitant]
  4. NEXIUM [Concomitant]
  5. ASPIRIN [Concomitant]
  6. REGLAN [Concomitant]

REACTIONS (9)
  - ABDOMINAL PAIN [None]
  - CONVULSION [None]
  - ENCEPHALOPATHY [None]
  - HYPOMAGNESAEMIA [None]
  - HYPONATRAEMIA [None]
  - LACTIC ACIDOSIS [None]
  - LEFT VENTRICULAR FAILURE [None]
  - PLEURAL EFFUSION [None]
  - TUMOUR LYSIS SYNDROME [None]
